FAERS Safety Report 16036945 (Version 1)
Quarter: 2019Q1

REPORT INFORMATION
  Report Type: Spontaneous
  Country: US (occurrence: US)
  Receive Date: 20190305
  Receipt Date: 20190305
  Transmission Date: 20190418
  Serious: Yes (Hospitalization)
  Sender: FDA-Public Use
  Company Number: US-OXFORD PHARMACEUTICALS, LLC-2019OXF00025

PATIENT
  Age: 13 Year
  Sex: Female
  Weight: 67.4 kg

DRUGS (1)
  1. LEVETIRACETAM. [Suspect]
     Active Substance: LEVETIRACETAM
     Indication: GENERALISED TONIC-CLONIC SEIZURE
     Dosage: 250 MG, 3X/DAY
     Route: 048

REACTIONS (2)
  - Papilloedema [Unknown]
  - Meningitis aseptic [Recovering/Resolving]
